FAERS Safety Report 4336049-7 (Version None)
Quarter: 2004Q1

REPORT INFORMATION
  Report Type: 
  Country: None (occurrence: None)
  Receive Date: 20040326
  Receipt Date: 20040112
  Transmission Date: 20041129
  Serious: Yes (Other)
  Sender: FDA-Public Use
  Company Number: 2004-01-0420

PATIENT
  Age: 66 Year
  Sex: Male

DRUGS (5)
  1. FLUTAMIDE [Suspect]
     Indication: PROSTATE CANCER METASTATIC
     Dosage: ORAL
     Route: 048
     Dates: start: 19970301, end: 19980801
  2. LUPRON [Suspect]
     Indication: PROSTATE CANCER METASTATIC
     Dates: start: 19970301
  3. RADIATION THERAPY [Suspect]
     Indication: METASTATIC NEOPLASM
     Dosage: UNKNOWN X-RAY THERAPY
     Dates: start: 19980901
  4. STRONTIUM CHLORIDE [Suspect]
     Dosage: 4 MCI X-RAY THERAPY
     Dates: start: 19981001
  5. THALIDOMIDE [Suspect]
     Indication: PROSTATE CANCER METASTATIC
     Dosage: 200 MG/DAY ORAL
     Route: 048
     Dates: start: 19990301

REACTIONS (8)
  - BRAIN OEDEMA [None]
  - DISEASE PROGRESSION [None]
  - GLOSSOPHARYNGEAL NERVE PARALYSIS [None]
  - MENTAL IMPAIRMENT [None]
  - METASTASES TO BONE [None]
  - METASTASES TO MENINGES [None]
  - PROSTATIC SPECIFIC ANTIGEN INCREASED [None]
  - VIITH NERVE PARALYSIS [None]
